FAERS Safety Report 9563922 (Version 3)
Quarter: 2013Q4

REPORT INFORMATION
  Report Type: Spontaneous
  Country: CA (occurrence: US)
  Receive Date: 20130927
  Receipt Date: 20131114
  Transmission Date: 20140711
  Serious: Yes (Death)
  Sender: FDA-Public Use
  Company Number: CA-JNJFOC-20130913853

PATIENT
  Age: 13 Year
  Sex: Female

DRUGS (2)
  1. BENADRYL UNSPECIFIED [Suspect]
     Indication: FOOD ALLERGY
     Route: 048
  2. EPIPEN [Suspect]
     Indication: PRODUCT USED FOR UNKNOWN INDICATION
     Route: 065

REACTIONS (4)
  - Pharyngeal oedema [Fatal]
  - Dyspnoea [Fatal]
  - Vomiting [Fatal]
  - Drug ineffective [Unknown]
